FAERS Safety Report 23348192 (Version 1)
Quarter: 2023Q4

REPORT INFORMATION
  Report Type: Spontaneous
  Country: FR (occurrence: FR)
  Receive Date: 20231228
  Receipt Date: 20231228
  Transmission Date: 20240109
  Serious: Yes (Hospitalization)
  Sender: FDA-Public Use
  Company Number: None

PATIENT
  Age: 4 Year
  Sex: Male

DRUGS (3)
  1. FENTANYL [Suspect]
     Active Substance: FENTANYL\FENTANYL CITRATE
     Indication: Analgesic therapy
     Dosage: 1 DOSAGE FORM, 1 TOTAL
     Route: 042
     Dates: start: 20231122
  2. DIPRIVAN [Suspect]
     Active Substance: ISOPROPYL ALCOHOL\PROPOFOL
     Indication: Anaesthesia
     Dosage: 1 DOSAGE FORM, 1 TOTAL
     Route: 042
     Dates: start: 20231122
  3. NIMBEX [Suspect]
     Active Substance: CISATRACURIUM BESYLATE
     Indication: Anaesthesia
     Dosage: 1 DOSAGE FORM, 1 TOTAL
     Route: 042
     Dates: start: 20231122

REACTIONS (1)
  - Extravasation [Recovered/Resolved]

NARRATIVE: CASE EVENT DATE: 20231122
